FAERS Safety Report 25359084 (Version 1)
Quarter: 2025Q2

REPORT INFORMATION
  Report Type: Other
  Country: CN (occurrence: CN)
  Receive Date: 20250526
  Receipt Date: 20250526
  Transmission Date: 20250717
  Serious: Yes (Other)
  Sender: Kanchan Healthcare
  Company Number: CN-Kanchan Healthcare INC-2177483

PATIENT
  Age: 58 Year
  Sex: Male

DRUGS (10)
  1. DEXAMETHASONE [Suspect]
     Active Substance: DEXAMETHASONE
     Indication: Castleman^s disease
  2. BORTEZOMIB [Suspect]
     Active Substance: BORTEZOMIB
  3. RIFAXIMIN [Concomitant]
     Active Substance: RIFAXIMIN
  4. TOLVAPTAN [Concomitant]
     Active Substance: TOLVAPTAN
  5. SPIRONOLACTONE [Concomitant]
     Active Substance: SPIRONOLACTONE
  6. FUROSEMIDE [Concomitant]
     Active Substance: FUROSEMIDE
  7. TERLIPRESSIN [Concomitant]
     Active Substance: TERLIPRESSIN
  8. ALBUMIN (HUMAN) [Concomitant]
     Active Substance: ALBUMIN HUMAN
  9. CYCLOPHOSPHAMIDE [Concomitant]
     Active Substance: CYCLOPHOSPHAMIDE
  10. SILTUXIMAB [Suspect]
     Active Substance: SILTUXIMAB

REACTIONS (2)
  - Myelosuppression [Recovered/Resolved]
  - Product use in unapproved indication [Unknown]
